FAERS Safety Report 19179146 (Version 1)
Quarter: 2021Q2

REPORT INFORMATION
  Report Type: Spontaneous
  Country: NO (occurrence: NO)
  Receive Date: 20210426
  Receipt Date: 20210426
  Transmission Date: 20210717
  Serious: Yes (Hospitalization)
  Sender: FDA-Public Use
  Company Number: NO-BIOGEN-2021BI01004544

PATIENT
  Age: 39 Year
  Sex: Female
  Weight: 63 kg

DRUGS (2)
  1. TOVIAZ DEPOTTAB 4 MG [Concomitant]
     Indication: INCONTINENCE
     Dosage: 4 MG DAILY (4 MG DAGLIG)
     Route: 065
  2. FAMPYRA [Suspect]
     Active Substance: DALFAMPRIDINE
     Indication: MULTIPLE SCLEROSIS
     Dosage: 2 TABLETS DAILY AT 12 HOUR INTERVALS (2 TABLETTER DAGLIG MED 12 TIMERS MELLOMROM)
     Route: 048
     Dates: start: 201911, end: 202103

REACTIONS (4)
  - Epilepsy [Not Recovered/Not Resolved]
  - Dizziness [Recovered/Resolved]
  - Muscle spasms [Not Recovered/Not Resolved]
  - Palpitations [Recovered/Resolved]

NARRATIVE: CASE EVENT DATE: 202102
